FAERS Safety Report 17454515 (Version 1)
Quarter: 2020Q1

REPORT INFORMATION
  Report Type: Spontaneous
  Country: CN (occurrence: CN)
  Receive Date: 20200225
  Receipt Date: 20200225
  Transmission Date: 20200409
  Serious: Yes (Other)
  Sender: FDA-Public Use
  Company Number: CN-ROCHE-2549656

PATIENT
  Age: 33 Year
  Sex: Female
  Weight: 58 kg

DRUGS (2)
  1. PEGASYS [Suspect]
     Active Substance: PEGINTERFERON ALFA-2A
     Indication: PNEUMONITIS
  2. PEGASYS [Suspect]
     Active Substance: PEGINTERFERON ALFA-2A
     Indication: CORONA VIRUS INFECTION
     Route: 058
     Dates: start: 20200205, end: 20200211

REACTIONS (6)
  - Pruritus [Recovering/Resolving]
  - Neutrophil count decreased [Unknown]
  - Intentional product use issue [Unknown]
  - Off label use [Unknown]
  - Leukopenia [Recovering/Resolving]
  - Rash [Recovering/Resolving]

NARRATIVE: CASE EVENT DATE: 20200210
